FAERS Safety Report 16903408 (Version 3)
Quarter: 2020Q1

REPORT INFORMATION
  Report Type: Report from Study
  Country: US (occurrence: US)
  Receive Date: 20191010
  Receipt Date: 20200207
  Transmission Date: 20200409
  Serious: Yes (Hospitalization)
  Sender: FDA-Public Use
  Company Number: US-B.I. PHARMACEUTICALS,INC./RIDGEFIELD-2019-BI-034353

PATIENT
  Age: 73 Year
  Sex: Male

DRUGS (2)
  1. OFEV [Suspect]
     Active Substance: NINTEDANIB
     Indication: IDIOPATHIC PULMONARY FIBROSIS
     Route: 048
     Dates: start: 20190604
  2. OFEV [Suspect]
     Active Substance: NINTEDANIB
     Route: 048

REACTIONS (7)
  - Pulmonary function test decreased [Unknown]
  - Vomiting [Unknown]
  - Haematemesis [Unknown]
  - Diarrhoea [Unknown]
  - Nausea [Unknown]
  - Myocardial infarction [Unknown]
  - Sinus disorder [Unknown]

NARRATIVE: CASE EVENT DATE: 201909
